FAERS Safety Report 15962320 (Version 4)
Quarter: 2021Q3

REPORT INFORMATION
  Report Type: Spontaneous
  Country: US (occurrence: US)
  Receive Date: 20190214
  Receipt Date: 20210701
  Transmission Date: 20211014
  Serious: Yes (Other)
  Sender: FDA-Public Use
  Company Number: PHEH2018US055999

PATIENT
  Age: 74 Year
  Sex: Female

DRUGS (1)
  1. TASIGNA [Suspect]
     Active Substance: NILOTINIB
     Indication: CHRONIC MYELOID LEUKAEMIA
     Dosage: 150 MG, BID
     Route: 048
     Dates: start: 201106, end: 20180427

REACTIONS (16)
  - Cerebrovascular accident [Unknown]
  - Osteoporosis [Unknown]
  - Emotional distress [Unknown]
  - Muscular weakness [Unknown]
  - Anxiety [Unknown]
  - Spinal compression fracture [Unknown]
  - Pathological fracture [Unknown]
  - Pain [Unknown]
  - Cholecystitis [Unknown]
  - Thrombosis [Unknown]
  - Cholelithiasis [Unknown]
  - Injury [Unknown]
  - Deep vein thrombosis [Unknown]
  - Pneumonia bacterial [Unknown]
  - Peripheral artery occlusion [Unknown]
  - Dysarthria [Unknown]

NARRATIVE: CASE EVENT DATE: 201803
